FAERS Safety Report 16123288 (Version 1)
Quarter: 2019Q1

REPORT INFORMATION
  Report Type: Spontaneous
  Country: US (occurrence: US)
  Receive Date: 20190327
  Receipt Date: 20190327
  Transmission Date: 20190418
  Serious: Yes (Other)
  Sender: FDA-Public Use
  Company Number: US-009507513-1903USA010394

PATIENT
  Age: 26 Year
  Sex: Female

DRUGS (1)
  1. NEXPLANON [Suspect]
     Active Substance: ETONOGESTREL
     Dosage: 68 MG IMPLANT
     Route: 059
     Dates: start: 20150313

REACTIONS (3)
  - Incorrect product administration duration [Unknown]
  - Complication associated with device [Unknown]
  - Device dislocation [Unknown]

NARRATIVE: CASE EVENT DATE: 201902
